FAERS Safety Report 21956389 (Version 2)
Quarter: 2025Q3

REPORT INFORMATION
  Report Type: Report from Study
  Country: GB (occurrence: GB)
  Receive Date: 20230206
  Receipt Date: 20250710
  Transmission Date: 20251020
  Serious: Yes (Hospitalization)
  Sender: ROCHE
  Company Number: GB-ROCHE-3272231

PATIENT
  Sex: Male

DRUGS (2)
  1. RISDIPLAM [Suspect]
     Active Substance: RISDIPLAM
     Indication: Product used for unknown indication
     Route: 065
     Dates: start: 20220628
  2. RISDIPLAM [Suspect]
     Active Substance: RISDIPLAM
     Route: 065
     Dates: start: 20220628

REACTIONS (3)
  - Overdose [Unknown]
  - Pneumothorax [Unknown]
  - Product storage error [Unknown]
